FAERS Safety Report 19502954 (Version 1)
Quarter: 2021Q3

REPORT INFORMATION
  Report Type: Spontaneous
  Country: PR (occurrence: PR)
  Receive Date: 20210707
  Receipt Date: 20210707
  Transmission Date: 20211014
  Serious: Yes (Hospitalization, Other)
  Sender: FDA-Public Use
  Company Number: PR-PRINSTON PHARMACEUTICAL INC.-2021PRN00244

PATIENT
  Age: 85 Year
  Sex: Female

DRUGS (1)
  1. CLONAZEPAM. [Suspect]
     Active Substance: CLONAZEPAM
     Dosage: 1 MG, 1X/DAY
     Route: 065

REACTIONS (2)
  - Respiratory failure [Recovered/Resolved]
  - Withdrawal syndrome [Recovered/Resolved]
